FAERS Safety Report 19376947 (Version 1)
Quarter: 2021Q2

REPORT INFORMATION
  Report Type: Spontaneous
  Country: US (occurrence: US)
  Receive Date: 20210604
  Receipt Date: 20210604
  Transmission Date: 20210717
  Serious: No
  Sender: FDA-Public Use
  Company Number: US-PFIZER INC-2018440811

PATIENT
  Age: 79 Year
  Sex: Male
  Weight: 193 kg

DRUGS (4)
  1. LYRICA [Suspect]
     Active Substance: PREGABALIN
     Indication: NEUROPATHY PERIPHERAL
     Dosage: 100 MG, 4X/DAY (1 BY MOUTH 4 TIMES A DAY) ((LYRICA 100MG X 4 + IF NEEDED)
     Route: 048
  2. LYRICA [Suspect]
     Active Substance: PREGABALIN
     Dosage: 100 MG, 4X/DAY ((1 CAPSULE BY MOUTH 4 TIMES A DAY/DAILY)
     Route: 048
  3. LYRICA [Suspect]
     Active Substance: PREGABALIN
     Dosage: 50 MG, AS NEEDED (50 MG LYRICA TO TAKE IN BETWEEN)
  4. LYRICA [Suspect]
     Active Substance: PREGABALIN
     Dosage: 100 MG, 3X/DAY
     Route: 048

REACTIONS (3)
  - Peripheral coldness [Unknown]
  - Intentional product use issue [Unknown]
  - Paraesthesia [Unknown]
